FAERS Safety Report 10018395 (Version 1)
Quarter: 2014Q1

REPORT INFORMATION
  Report Type: Spontaneous
  Country: IN (occurrence: IN)
  Receive Date: 20140318
  Receipt Date: 20140318
  Transmission Date: 20141002
  Serious: Yes (Other)
  Sender: FDA-Public Use
  Company Number: IN-009507513-1403IND008003

PATIENT
  Sex: Male

DRUGS (1)
  1. JANUMET [Suspect]
     Indication: DIABETES MELLITUS
     Dosage: STRENGTH:50/500 MG,FREQUENCY:2X/DAY
     Route: 048
     Dates: start: 2014

REACTIONS (1)
  - Burning sensation [Not Recovered/Not Resolved]
